FAERS Safety Report 5017692-9 (Version None)
Quarter: 2006Q2

REPORT INFORMATION
  Report Type: 
  Country: None (occurrence: None)
  Receive Date: 20060525
  Receipt Date: 20060516
  Transmission Date: 20061013
  Serious: Yes (Hospitalization, Other)
  Sender: FDA-Public Use
  Company Number: 2006-05-1086

PATIENT
  Age: 35 Year
  Sex: Male
  Weight: 92.5338 kg

DRUGS (5)
  1. INTRON A [Suspect]
     Indication: MALIGNANT MELANOMA
     Dosage: SEE IMAGE
     Route: 042
     Dates: start: 20060206, end: 20060210
  2. INTRON A [Suspect]
     Indication: MALIGNANT MELANOMA
     Dosage: SEE IMAGE
     Route: 042
     Dates: start: 20060214, end: 20060223
  3. INTRON A [Suspect]
     Indication: MALIGNANT MELANOMA
     Dosage: SEE IMAGE
     Route: 042
     Dates: start: 20060206, end: 20060227
  4. INTRON A [Suspect]
     Indication: MALIGNANT MELANOMA
     Dosage: SEE IMAGE
     Route: 042
     Dates: start: 20060224, end: 20060227
  5. MULTIVITAMIN [Concomitant]

REACTIONS (18)
  - BALANCE DISORDER [None]
  - BLOOD BILIRUBIN INCREASED [None]
  - BLOOD LACTATE DEHYDROGENASE INCREASED [None]
  - BONE MARROW FAILURE [None]
  - CHOLELITHIASIS [None]
  - COOMBS TEST POSITIVE [None]
  - DEHYDRATION [None]
  - DIARRHOEA [None]
  - DIZZINESS [None]
  - GALLBLADDER DISORDER [None]
  - GASTRITIS [None]
  - HAEMOLYSIS [None]
  - HYPERBILIRUBINAEMIA [None]
  - HYPOKALAEMIA [None]
  - HYPOVOLAEMIA [None]
  - LIVER FUNCTION TEST ABNORMAL [None]
  - NAUSEA [None]
  - VOMITING [None]
